FAERS Safety Report 5482589-7 (Version None)
Quarter: 2007Q4

REPORT INFORMATION
  Report Type: 
  Country: None (occurrence: None)
  Receive Date: 20071011
  Receipt Date: 20070724
  Transmission Date: 20080405
  Serious: Yes (Other)
  Sender: FDA-Public Use
  Company Number: A0666056A

PATIENT
  Sex: Female

DRUGS (1)
  1. TYKERB [Suspect]
     Indication: OVARIAN DISORDER
     Dosage: 1250MG UNKNOWN
     Route: 048

REACTIONS (1)
  - HYPERBILIRUBINAEMIA [None]
